FAERS Safety Report 8095021-4 (Version None)
Quarter: 2012Q1

REPORT INFORMATION
  Report Type: 
  Country: None (occurrence: None)
  Receive Date: 20120131
  Receipt Date: 20120131
  Transmission Date: 20120608
  Serious: Yes (Other)
  Sender: FDA-Public Use
  Company Number: None

PATIENT
  Age: 26 Year
  Sex: Female
  Weight: 74.842 kg

DRUGS (1)
  1. IMPLANON [Suspect]
     Indication: CONTRACEPTION
     Dates: start: 20110511, end: 20120130

REACTIONS (4)
  - MOOD SWINGS [None]
  - DEVICE DEPLOYMENT ISSUE [None]
  - INSOMNIA [None]
  - WEIGHT INCREASED [None]
